FAERS Safety Report 7149734-9 (Version None)
Quarter: 2010Q4

REPORT INFORMATION
  Report Type: 
  Country: None (occurrence: None)
  Receive Date: 20101210
  Receipt Date: 20101201
  Transmission Date: 20110411
  Serious: Yes (Hospitalization)
  Sender: FDA-Public Use
  Company Number: US-BIOGENIDEC-2010BI020840

PATIENT
  Age: 52 Year
  Sex: Female

DRUGS (1)
  1. AVONEX [Suspect]
     Indication: MULTIPLE SCLEROSIS
     Route: 030
     Dates: start: 20100601, end: 20100601

REACTIONS (7)
  - AMNESIA [None]
  - COGNITIVE DISORDER [None]
  - FEELING ABNORMAL [None]
  - HYPERSENSITIVITY [None]
  - LETHARGY [None]
  - MOBILITY DECREASED [None]
  - NAUSEA [None]
